FAERS Safety Report 10253261 (Version 1)
Quarter: 2014Q2

REPORT INFORMATION
  Report Type: Spontaneous
  Country: US (occurrence: US)
  Receive Date: 20140623
  Receipt Date: 20140623
  Transmission Date: 20141212
  Serious: No
  Sender: FDA-Public Use
  Company Number: US-ASTRAZENECA-2014SE41076

PATIENT
  Sex: Male

DRUGS (1)
  1. SYMBICORT [Suspect]
     Dosage: UNKNOWN DOSE AND FREQUENCY
     Route: 055

REACTIONS (3)
  - Asthma [Unknown]
  - Insomnia [Unknown]
  - Intentional product misuse [Unknown]
